FAERS Safety Report 4512543-0 (Version None)
Quarter: 2004Q4

REPORT INFORMATION
  Report Type: 
  Country: None (occurrence: None)
  Receive Date: 20041124
  Receipt Date: 20041103
  Transmission Date: 20050328
  Serious: Yes (Hospitalization, Disabling, Other)
  Sender: FDA-Public Use
  Company Number: US_0411107810

PATIENT
  Age: 41 Year
  Sex: Male
  Weight: 74 kg

DRUGS (9)
  1. HUMULIN L [Suspect]
     Indication: DIABETES MELLITUS
     Dosage: 10 U/2 DAY
     Dates: start: 19920101
  2. HUMALOG [Suspect]
     Indication: DIABETES MELLITUS
     Route: 065
     Dates: start: 19970101
  3. HUMULIN U [Suspect]
     Indication: DIABETES MELLITUS
     Route: 065
     Dates: start: 19940610
  4. HUMULIN R [Suspect]
     Indication: DIABETES MELLITUS
     Route: 065
     Dates: start: 19920101, end: 19970101
  5. INSULIN-INSULIN-ANIMAL (UNKNOWN FORMULATION) (INSUL [Suspect]
     Indication: DIABETES MELLITUS
     Dosage: UNK
     Route: 065
     Dates: start: 19660101, end: 19920101
  6. HUMULIN N [Suspect]
     Indication: DIABETES MELLITUS
     Dosage: 14 U DAY
     Dates: start: 20040503
  7. ASPIRIN [Concomitant]
  8. CENTRUM [Concomitant]
  9. PREVACID [Concomitant]

REACTIONS (26)
  - AMNESIA [None]
  - ANXIETY DISORDER [None]
  - BENIGN PROSTATIC HYPERPLASIA [None]
  - BLOOD GLUCOSE FLUCTUATION [None]
  - BRAIN DAMAGE [None]
  - CHEST PAIN [None]
  - CONTUSION [None]
  - DIABETES MELLITUS INSULIN-DEPENDENT [None]
  - DISTURBANCE IN ATTENTION [None]
  - DIZZINESS [None]
  - FINGER DEFORMITY [None]
  - GROIN PAIN [None]
  - HYPOGLYCAEMIA [None]
  - HYPOGLYCAEMIC SEIZURE [None]
  - IMPAIRED GASTRIC EMPTYING [None]
  - INGUINAL HERNIA [None]
  - LIMB INJURY [None]
  - LIPODYSTROPHY ACQUIRED [None]
  - MEMORY IMPAIRMENT [None]
  - MUSCLE INJURY [None]
  - NASOPHARYNGITIS [None]
  - OEDEMA PERIPHERAL [None]
  - PHARMACEUTICAL PRODUCT COMPLAINT [None]
  - PHARYNGITIS [None]
  - STRESS SYMPTOMS [None]
  - WEIGHT DECREASED [None]
